FAERS Safety Report 9354313 (Version 2)
Quarter: 2013Q4

REPORT INFORMATION
  Report Type: Spontaneous
  Country: US (occurrence: US)
  Receive Date: 20130618
  Receipt Date: 20131105
  Transmission Date: 20140711
  Serious: Yes (Hospitalization, Other)
  Sender: FDA-Public Use
  Company Number: US-BMSGILMSD-2013-0077110

PATIENT
  Age: 48 Year
  Sex: Male

DRUGS (3)
  1. ATRIPLA [Suspect]
     Indication: HIV INFECTION
  2. DESVENLAFAXINE [Concomitant]
     Indication: ANXIETY
  3. DESVENLAFAXINE [Concomitant]
     Indication: ANGER

REACTIONS (4)
  - Panic attack [Recovering/Resolving]
  - Chest pain [Recovered/Resolved]
  - Unevaluable event [Unknown]
  - Insomnia [Recovered/Resolved]
